FAERS Safety Report 11590704 (Version 2)
Quarter: 2015Q4

REPORT INFORMATION
  Report Type: Spontaneous
  Country: US (occurrence: US)
  Receive Date: 20151002
  Receipt Date: 20151006
  Transmission Date: 20160304
  Serious: Yes (Life-Threatening, Other)
  Sender: FDA-Public Use
  Company Number: US-PFIZER INC-2015317469

PATIENT
  Sex: Female

DRUGS (1)
  1. NEURONTIN [Suspect]
     Active Substance: GABAPENTIN
     Indication: FIBROMYALGIA
     Dosage: 600 MG, 3X/DAY

REACTIONS (30)
  - Rheumatoid arthritis [Unknown]
  - Condition aggravated [Unknown]
  - Fatigue [Unknown]
  - Fluid retention [Unknown]
  - Haematocrit increased [Unknown]
  - Liver disorder [Unknown]
  - Impaired work ability [Unknown]
  - Malaise [Unknown]
  - Fat tissue increased [Unknown]
  - Pain [Unknown]
  - Swelling [Unknown]
  - Systemic lupus erythematosus [Unknown]
  - Weight increased [Unknown]
  - Acne [Unknown]
  - Abdominal distension [Unknown]
  - Lethargy [Unknown]
  - Mean cell haemoglobin concentration decreased [Unknown]
  - Hypersensitivity [Unknown]
  - Herpes zoster [Recovering/Resolving]
  - Muscle spasms [Unknown]
  - Decreased appetite [Unknown]
  - Asthenia [Unknown]
  - Rash [Unknown]
  - Protein total increased [Unknown]
  - Nephrolithiasis [Unknown]
  - Peripheral swelling [Unknown]
  - Fungal infection [Unknown]
  - Joint swelling [Unknown]
  - Diabetes mellitus [Unknown]
  - Myalgia [Unknown]
